FAERS Safety Report 18709322 (Version 1)
Quarter: 2021Q1

REPORT INFORMATION
  Report Type: Spontaneous
  Country: KR (occurrence: KR)
  Receive Date: 20210107
  Receipt Date: 20210107
  Transmission Date: 20210419
  Serious: Yes (Hospitalization, Other)
  Sender: FDA-Public Use
  Company Number: KR-ALKEM LABORATORIES LIMITED-KR-ALKEM-2020-09380

PATIENT
  Age: 48 Year
  Sex: Male

DRUGS (26)
  1. LINEZOLID. [Suspect]
     Active Substance: LINEZOLID
     Dosage: 1200 MILLIGRAM, QD
     Route: 048
  2. AMIKACIN. [Suspect]
     Active Substance: AMIKACIN
     Indication: PRODUCT USED FOR UNKNOWN INDICATION
     Dosage: 15 MILLIGRAM/KILOGRAM, QD
     Route: 037
  3. DOXYCYCLINE. [Concomitant]
     Active Substance: DOXYCYCLINE
     Indication: PRODUCT USED FOR UNKNOWN INDICATION
     Dosage: 400 MILLIGRAM, QD
     Route: 048
  4. CEFTRIAXONE. [Suspect]
     Active Substance: CEFTRIAXONE
     Dosage: 4 GRAM, QD
     Route: 065
  5. DOXYCYCLINE. [Concomitant]
     Active Substance: DOXYCYCLINE
     Dosage: 200 MILLIGRAM, QD
     Route: 048
  6. RIFAMPICIN [Concomitant]
     Active Substance: RIFAMPIN
     Dosage: 600 MILLIGRAM, QD
     Route: 065
  7. SITAGLIPTIN [Concomitant]
     Active Substance: SITAGLIPTIN
     Indication: DIABETES MELLITUS
     Dosage: UNK
     Route: 065
  8. LINEZOLID. [Suspect]
     Active Substance: LINEZOLID
     Indication: MENINGITIS
     Dosage: 1200 MILLIGRAM, QD
     Route: 048
  9. RIFAMPICIN [Concomitant]
     Active Substance: RIFAMPIN
     Indication: PRODUCT USED FOR UNKNOWN INDICATION
     Dosage: 1200 MILLIGRAM, QD
     Route: 065
  10. CEFTRIAXONE. [Suspect]
     Active Substance: CEFTRIAXONE
     Indication: PNEUMONIA BACTERIAL
     Dosage: 2 GRAM, QD
     Route: 065
  11. AMIKACIN. [Suspect]
     Active Substance: AMIKACIN
     Dosage: 25 MILLIGRAM
     Route: 037
  12. CLINDAMYCIN. [Suspect]
     Active Substance: CLINDAMYCIN
     Indication: PNEUMONIA BACTERIAL
     Dosage: UNK
     Route: 042
  13. VANCOMYCIN [Suspect]
     Active Substance: VANCOMYCIN
     Dosage: 25 MILLIGRAM
     Route: 042
  14. TEICOPLANIN [Concomitant]
     Active Substance: TEICOPLANIN
     Indication: PRODUCT USED FOR UNKNOWN INDICATION
     Dosage: 400 MILLIGRAM, QD
     Route: 065
  15. ROXITHROMYCIN [Suspect]
     Active Substance: ROXITHROMYCIN
     Indication: PRODUCT USED FOR UNKNOWN INDICATION
     Dosage: 150 MILLIGRAM, BID
     Route: 065
  16. LEVOFLOXACIN. [Suspect]
     Active Substance: LEVOFLOXACIN
     Indication: PRODUCT USED FOR UNKNOWN INDICATION
     Dosage: 750 MILLIGRAM, QD
     Route: 048
  17. MOXIFLOXACIN. [Suspect]
     Active Substance: MOXIFLOXACIN
     Indication: PNEUMONIA BACTERIAL
     Dosage: UNK
     Route: 042
  18. SULFAMETHOXAZOLE,TRIMETHOPRIM [Suspect]
     Active Substance: SULFAMETHOXAZOLE\TRIMETHOPRIM
     Indication: MENINGITIS
     Dosage: UNK
     Route: 065
  19. VANCOMYCIN [Suspect]
     Active Substance: VANCOMYCIN
     Indication: PRODUCT USED FOR UNKNOWN INDICATION
     Dosage: 2 GRAM, QD
     Route: 042
  20. VANCOMYCIN [Suspect]
     Active Substance: VANCOMYCIN
     Dosage: 2 GRAM, QD
     Route: 042
  21. IMIPENEM [Concomitant]
     Active Substance: IMIPENEM
     Indication: MENINGITIS
     Dosage: 3 GRAM, QD
     Route: 065
  22. METFORMIN [Concomitant]
     Active Substance: METFORMIN HYDROCHLORIDE
     Indication: DIABETES MELLITUS
     Dosage: UNK
     Route: 065
  23. PREDNISOLONE. [Concomitant]
     Active Substance: PREDNISOLONE
     Indication: PRODUCT USED FOR UNKNOWN INDICATION
     Dosage: 25 MILLIGRAM, QD
     Route: 065
  24. AZITHROMYCIN ANHYDROUS. [Concomitant]
     Active Substance: AZITHROMYCIN ANHYDROUS
     Indication: PRODUCT USED FOR UNKNOWN INDICATION
     Dosage: UNK
     Route: 065
  25. CICLOSPORIN [Concomitant]
     Active Substance: CYCLOSPORINE
     Indication: PRODUCT USED FOR UNKNOWN INDICATION
     Dosage: 200 MILLIGRAM, QD
     Route: 065
  26. MEROPENEM. [Concomitant]
     Active Substance: MEROPENEM
     Indication: PRODUCT USED FOR UNKNOWN INDICATION
     Dosage: 6 GRAM, QD
     Route: 065

REACTIONS (14)
  - Paraesthesia [Unknown]
  - Therapeutic response changed [Unknown]
  - Headache [Unknown]
  - Hypoacusis [Unknown]
  - Diplopia [Unknown]
  - Disease recurrence [Unknown]
  - Adverse drug reaction [Unknown]
  - Toxicity to various agents [Unknown]
  - Pyrexia [Unknown]
  - Underdose [Unknown]
  - Brain abscess [Recovering/Resolving]
  - Malabsorption from administration site [Unknown]
  - Neutropenia [Recovering/Resolving]
  - Treatment failure [Unknown]
